FAERS Safety Report 8529852-0 (Version None)
Quarter: 2012Q3

REPORT INFORMATION
  Report Type: 
  Country: None (occurrence: None)
  Receive Date: 20120723
  Receipt Date: 20120710
  Transmission Date: 20120928
  Serious: Yes (Hospitalization, Other)
  Sender: FDA-Public Use
  Company Number: US-ASTELLAS-2012US005266

PATIENT
  Sex: Male
  Weight: 95 kg

DRUGS (6)
  1. AMIODARONE HCL [Concomitant]
     Indication: PRODUCT USED FOR UNKNOWN INDICATION
     Dosage: 100 MG, UID/QD
     Route: 048
  2. ATENOLOL [Concomitant]
     Indication: PRODUCT USED FOR UNKNOWN INDICATION
     Dosage: 25 MG, UID/QD
     Route: 048
  3. ERLOTINIB HYDROCHLORIDE [Suspect]
     Indication: LUNG ADENOCARCINOMA
     Dosage: 150 MG, UID/QD
     Route: 048
     Dates: start: 20120413, end: 20120628
  4. ERLOTINIB HYDROCHLORIDE [Suspect]
     Dosage: 150 MG, UID/QD
     Route: 048
     Dates: start: 20120702
  5. PLAVIX [Concomitant]
     Indication: PRODUCT USED FOR UNKNOWN INDICATION
     Dosage: 75 MG, UID/QD
     Route: 048
  6. SERTRALINE                         /01011402/ [Concomitant]
     Indication: DEPRESSION
     Dosage: 25 MG, UID/QD
     Route: 048

REACTIONS (12)
  - TREMOR [None]
  - CHILLS [None]
  - RASH [None]
  - BLISTER [None]
  - FEELING HOT [None]
  - PULMONARY OEDEMA [None]
  - CELLULITIS [None]
  - EYE PRURITUS [None]
  - PYREXIA [None]
  - DYSGEUSIA [None]
  - HALLUCINATION [None]
  - COUGH [None]
